FAERS Safety Report 6887300-0 (Version None)
Quarter: 2010Q3

REPORT INFORMATION
  Report Type: 
  Country: None (occurrence: None)
  Receive Date: 20100730
  Receipt Date: 20090611
  Transmission Date: 20110219
  Serious: No
  Sender: FDA-Public Use
  Company Number: A0790417A

PATIENT
  Age: 80 Year
  Sex: Female

DRUGS (4)
  1. IMITREX [Suspect]
     Indication: MIGRAINE
     Dosage: 1TAB PER DAY
     Route: 048
     Dates: start: 20060101, end: 20081201
  2. TREXIMET [Suspect]
     Indication: MIGRAINE
     Dosage: 1TAB AS REQUIRED
     Route: 048
     Dates: start: 20081201
  3. ANTI-CHOLESTEROL MEDICATION [Concomitant]
  4. THYROID MEDICATION [Concomitant]

REACTIONS (5)
  - DRUG ADMINISTRATION ERROR [None]
  - DRUG INEFFECTIVE [None]
  - INFLUENZA LIKE ILLNESS [None]
  - LETHARGY [None]
  - MALAISE [None]
